FAERS Safety Report 19159607 (Version 1)
Quarter: 2021Q2

REPORT INFORMATION
  Report Type: Spontaneous
  Country: DE (occurrence: DE)
  Receive Date: 20210420
  Receipt Date: 20210420
  Transmission Date: 20210717
  Serious: Yes (Hospitalization)
  Sender: FDA-Public Use
  Company Number: DE-TEVA-2021-DE-1901779

PATIENT
  Age: 89 Year
  Sex: Female

DRUGS (14)
  1. PANTOPRAZOL [Concomitant]
     Active Substance: PANTOPRAZOLE SODIUM
     Dosage: 40 MILLIGRAM DAILY; 1?0?0?0
  2. VINCRISTIN [Suspect]
     Active Substance: VINCRISTINE
     Route: 042
  3. PREDNISOLON [Suspect]
     Active Substance: PREDNISOLONE
     Route: 048
  4. LEVOTHYROXINE SODIUM. [Concomitant]
     Active Substance: LEVOTHYROXINE SODIUM
     Dosage: 100 MICROGRAM DAILY; 1?0?0?0
  5. COLECALCIFEROL [Concomitant]
     Active Substance: CHOLECALCIFEROL
     Dosage: 1000 IU (INTERNATIONAL UNIT) DAILY; 1?0?0?0
  6. CYCLOPHOSPHAMIDE. [Suspect]
     Active Substance: CYCLOPHOSPHAMIDE
     Route: 042
  7. RITUXIMAB. [Suspect]
     Active Substance: RITUXIMAB
     Route: 042
  8. APIXABAN [Concomitant]
     Active Substance: APIXABAN
     Dosage: 2.5 MILLIGRAM DAILY; 1?0?0?0
  9. TORASEMID [Suspect]
     Active Substance: TORSEMIDE
     Dosage: 10 MILLIGRAM DAILY; 1?0?0?0
  10. CANDESARTAN. [Concomitant]
     Active Substance: CANDESARTAN
     Dosage: 16 MG, 1?0?0.5?0, UNIT DOSE: 24 GRAM
  11. SPIRONOLACTON [Suspect]
     Active Substance: SPIRONOLACTONE
     Dosage: 50 MILLIGRAM DAILY; 1?0?0?0
  12. BISOPROLOL [Concomitant]
     Active Substance: BISOPROLOL
     Dosage: 5 MG, 1?0?1?0
  13. COTRIMOXAZOL [Concomitant]
     Active Substance: SULFAMETHOXAZOLE\TRIMETHOPRIM
     Dosage: 800 | 160 MG / 3XWEEK, MONDAYS, WEDNESDAYS, FRIDAYS
  14. ALLOPURINOL. [Concomitant]
     Active Substance: ALLOPURINOL
     Dosage: 300 MILLIGRAM DAILY; 1?0?0?0

REACTIONS (3)
  - Renal function test abnormal [Unknown]
  - Acute kidney injury [Unknown]
  - Leukocytosis [Unknown]
